FAERS Safety Report 16985284 (Version 1)
Quarter: 2019Q4

REPORT INFORMATION
  Report Type: Spontaneous
  Country: DE (occurrence: DE)
  Receive Date: 20191101
  Receipt Date: 20191101
  Transmission Date: 20200122
  Serious: Yes (Other)
  Sender: FDA-Public Use
  Company Number: DE-BAUSCH-BL-2019-059112

PATIENT
  Age: 31 Year
  Sex: Female

DRUGS (3)
  1. MINPROSTIN E2 [Concomitant]
     Active Substance: DINOPROSTONE
     Indication: LABOUR INDUCTION
     Route: 067
     Dates: start: 20161014, end: 20161014
  2. QUETIAPINE. [Suspect]
     Active Substance: QUETIAPINE
     Indication: DEPRESSION
     Route: 048
     Dates: start: 20160101, end: 20161014
  3. VENLAFAXINE [Suspect]
     Active Substance: VENLAFAXINE HYDROCHLORIDE
     Indication: DEPRESSION
     Route: 048
     Dates: start: 20160101, end: 20161014

REACTIONS (2)
  - Maternal exposure during pregnancy [Unknown]
  - Meconium in amniotic fluid [Unknown]

NARRATIVE: CASE EVENT DATE: 20160101
